FAERS Safety Report 8999855 (Version 1)
Quarter: 2013Q1

REPORT INFORMATION
  Report Type: Spontaneous
  Country: FR (occurrence: FR)
  Receive Date: 20130102
  Receipt Date: 20130102
  Transmission Date: 20140127
  Serious: Yes (Hospitalization)
  Sender: FDA-Public Use
  Company Number: FR-SANOFI-AVENTIS-2012SA092836

PATIENT
  Age: 25 Year
  Sex: Female

DRUGS (11)
  1. RIFADINE [Suspect]
     Indication: MENINGITIS ASEPTIC
     Route: 042
     Dates: start: 20121108, end: 20121127
  2. RIFADINE [Suspect]
     Indication: MENINGITIS ASEPTIC
     Route: 048
     Dates: start: 20121128
  3. MYAMBUTOL [Suspect]
     Indication: MENINGITIS ASEPTIC
     Route: 042
     Dates: start: 20121108, end: 20121127
  4. MYAMBUTOL [Suspect]
     Indication: MENINGITIS ASEPTIC
     Route: 048
     Dates: start: 20121128
  5. AMOXICILLIN [Suspect]
     Indication: MENINGITIS ASEPTIC
     Dosage: FREQUENCY: 5 TIMES A DAY
     Route: 042
     Dates: start: 20121106, end: 20121128
  6. AMOXICILLIN [Suspect]
     Indication: MENINGITIS ASEPTIC
     Route: 048
     Dates: start: 20121128
  7. RIMIFON [Suspect]
     Indication: MENINGITIS ASEPTIC
     Route: 042
     Dates: start: 20121108, end: 20121115
  8. RIMIFON [Suspect]
     Indication: MENINGITIS ASEPTIC
     Route: 042
     Dates: start: 20121126, end: 20121127
  9. RIMIFON [Suspect]
     Indication: MENINGITIS ASEPTIC
     Route: 048
     Dates: start: 20121128
  10. VITAMIN B6 [Concomitant]
     Route: 042
     Dates: end: 20121127
  11. VITAMIN B6 [Concomitant]
     Route: 048
     Dates: start: 20121128

REACTIONS (3)
  - Hepatocellular injury [Not Recovered/Not Resolved]
  - Transaminases increased [Not Recovered/Not Resolved]
  - Abdominal pain [Not Recovered/Not Resolved]
